FAERS Safety Report 14552523 (Version 2)
Quarter: 2018Q1

REPORT INFORMATION
  Report Type: Spontaneous
  Country: US (occurrence: US)
  Receive Date: 20180220
  Receipt Date: 20180223
  Transmission Date: 20180509
  Serious: No
  Sender: FDA-Public Use
  Company Number: US-BAYER-2018-030571

PATIENT
  Age: 35 Year
  Sex: Female
  Weight: 88.89 kg

DRUGS (3)
  1. ALEVE [Suspect]
     Active Substance: NAPROXEN SODIUM
     Indication: BLOOD PRESSURE MEASUREMENT
  2. ALEVE [Suspect]
     Active Substance: NAPROXEN SODIUM
     Indication: UPPER RESPIRATORY TRACT INFECTION
     Dosage: 2 DF, EVERY 4 TO 6 HOURS
     Route: 048
     Dates: start: 201802, end: 20180213
  3. ALEVE [Suspect]
     Active Substance: NAPROXEN SODIUM
     Indication: LUNG DISORDER

REACTIONS (3)
  - Therapeutic response unexpected [Unknown]
  - Drug effective for unapproved indication [Recovered/Resolved]
  - Incorrect dose administered [Unknown]

NARRATIVE: CASE EVENT DATE: 201802
